FAERS Safety Report 9369380 (Version 1)
Quarter: 2013Q2

REPORT INFORMATION
  Report Type: Spontaneous
  Country: US (occurrence: None)
  Receive Date: 20130625
  Receipt Date: 20130625
  Transmission Date: 20140414
  Serious: Yes (Other)
  Sender: FDA-Public Use
  Company Number: None

PATIENT
  Age: 15 Year
  Sex: Female
  Weight: 41.91 kg

DRUGS (2)
  1. TOPOMAX [Suspect]
     Indication: CONVULSION
     Route: 048
     Dates: start: 201010, end: 201011
  2. TRILEPTAL [Suspect]
     Indication: CONVULSION
     Route: 048

REACTIONS (1)
  - Convulsion [None]
